FAERS Safety Report 15376351 (Version 1)
Quarter: 2018Q3

REPORT INFORMATION
  Report Type: Spontaneous
  Country: US (occurrence: US)
  Receive Date: 20180912
  Receipt Date: 20180912
  Transmission Date: 20181010
  Serious: Yes (Other)
  Sender: FDA-Public Use
  Company Number: US-MAYNE PHARMA-2018MYN001389

PATIENT

DRUGS (1)
  1. DIAZEPAM. [Suspect]
     Active Substance: DIAZEPAM
     Indication: PRODUCT USED FOR UNKNOWN INDICATION

REACTIONS (8)
  - Burning sensation [Unknown]
  - Lip swelling [Unknown]
  - Swelling face [Unknown]
  - Hypoaesthesia oral [Unknown]
  - Hot flush [Unknown]
  - Oral discomfort [Unknown]
  - Throat irritation [Unknown]
  - Hyperhidrosis [Unknown]
